FAERS Safety Report 19776706 (Version 1)
Quarter: 2021Q3

REPORT INFORMATION
  Report Type: Spontaneous
  Country: RU (occurrence: RU)
  Receive Date: 20210901
  Receipt Date: 20210901
  Transmission Date: 20211014
  Serious: Yes (Death, Life-Threatening, Hospitalization)
  Sender: FDA-Public Use
  Company Number: RU-GE HEALTHCARE LIFE SCIENCES-2021CSU002898

PATIENT

DRUGS (5)
  1. DOXORUBICIN [Concomitant]
     Active Substance: DOXORUBICIN
     Dosage: UNK
     Route: 065
     Dates: start: 20210519
  2. OMNIPAQUE [Suspect]
     Active Substance: IOHEXOL
     Indication: PRODUCT USED FOR UNKNOWN INDICATION
  3. ONDANSETRON [Concomitant]
     Active Substance: ONDANSETRON
     Dosage: UNK
     Route: 065
     Dates: start: 20210519
  4. OMNIPAQUE [Suspect]
     Active Substance: IOHEXOL
     Indication: COMPUTERISED TOMOGRAM
     Dosage: 95 ML, SINGLE
     Route: 065
     Dates: start: 20210608, end: 20210608
  5. DEXAMETHASONE. [Concomitant]
     Active Substance: DEXAMETHASONE
     Dosage: UNK
     Route: 065
     Dates: start: 20210519

REACTIONS (7)
  - Respiration abnormal [Unknown]
  - Coma [Fatal]
  - Seizure [Recovered/Resolved]
  - Pulmonary embolism [Fatal]
  - Cardiac arrest [Recovered/Resolved]
  - Cyanosis [Recovered/Resolved]
  - Arrhythmia [Fatal]

NARRATIVE: CASE EVENT DATE: 20210608
